FAERS Safety Report 11039090 (Version 1)
Quarter: 2015Q2

REPORT INFORMATION
  Report Type: Spontaneous
  Country: AT (occurrence: AT)
  Receive Date: 20150416
  Receipt Date: 20150416
  Transmission Date: 20150821
  Serious: Yes (Hospitalization)
  Sender: FDA-Public Use
  Company Number: AT-ABBVIE-15P-009-1368633-00

PATIENT
  Sex: Female

DRUGS (1)
  1. DUODOPA [Suspect]
     Active Substance: CARBIDOPA\LEVODOPA
     Indication: PARKINSON^S DISEASE
     Dosage: MD: 5 ML/ED: 2 ML/CR: 3 ML/H
     Route: 050
     Dates: start: 20140925

REACTIONS (4)
  - Device occlusion [Unknown]
  - Incorrect route of drug administration [Recovered/Resolved]
  - Device occlusion [Recovered/Resolved]
  - Device kink [Unknown]
